FAERS Safety Report 14029013 (Version 2)
Quarter: 2019Q1

REPORT INFORMATION
  Report Type: Spontaneous
  Country: US (occurrence: US)
  Receive Date: 20170930
  Receipt Date: 20190129
  Transmission Date: 20190417
  Serious: No
  Sender: FDA-Public Use
  Company Number: US-SA-2017SA080953

PATIENT
  Age: 40 Year
  Sex: Female

DRUGS (2)
  1. AUBAGIO [Suspect]
     Active Substance: TERIFLUNOMIDE
     Indication: MULTIPLE SCLEROSIS
     Dosage: 14 MG,QD
     Route: 048
     Dates: start: 20160928
  2. AUBAGIO [Suspect]
     Active Substance: TERIFLUNOMIDE
     Dosage: 14 MG,QD
     Route: 048
     Dates: start: 20160928

REACTIONS (6)
  - Fatigue [Unknown]
  - Paraesthesia [Unknown]
  - Muscular weakness [Unknown]
  - Nausea [Unknown]
  - Depressed mood [Unknown]
  - Limb discomfort [Unknown]

NARRATIVE: CASE EVENT DATE: 20170401
